FAERS Safety Report 8973153 (Version 1)
Quarter: 2012Q4

REPORT INFORMATION
  Report Type: 
  Country: US (occurrence: US)
  Receive Date: 20121219
  Receipt Date: 20121219
  Transmission Date: 20130627
  Serious: Yes (Hospitalization, Disabling, Other)
  Sender: FDA-Public Use
  Company Number: US-AMGEN-USASP2012081049

PATIENT
  Sex: Female

DRUGS (2)
  1. ENBREL [Suspect]
     Indication: RHEUMATOID ARTHRITIS
     Dosage: 50 mg, qwk
     Dates: start: 20070101
  2. METHOTREXATE [Concomitant]
     Dosage: UNK
     Dates: end: 201210

REACTIONS (17)
  - Postoperative thrombosis [Recovered/Resolved]
  - Post procedural complication [Recovered/Resolved]
  - Obesity surgery [Recovered/Resolved]
  - Gastric perforation [Recovered/Resolved]
  - Coma [Recovered/Resolved]
  - Mobility decreased [Recovered/Resolved]
  - Gastrointestinal tube insertion [Recovered/Resolved]
  - Aphagia [Recovered/Resolved]
  - Post procedural sepsis [Recovered/Resolved]
  - Abscess [Recovered/Resolved]
  - Pain [Not Recovered/Not Resolved]
  - Malaise [Recovered/Resolved]
  - Oedema peripheral [Not Recovered/Not Resolved]
  - Limb injury [Not Recovered/Not Resolved]
  - Wound [Not Recovered/Not Resolved]
  - Wound drainage [Not Recovered/Not Resolved]
  - Wound infection [Not Recovered/Not Resolved]
